FAERS Safety Report 12867039 (Version 1)
Quarter: 2016Q4

REPORT INFORMATION
  Report Type: Spontaneous
  Country: US (occurrence: US)
  Receive Date: 20161020
  Receipt Date: 20161020
  Transmission Date: 20170207
  Serious: Yes (Death, Hospitalization, Other)
  Sender: FDA-Public Use
  Company Number: US-CELGENEUS-USA-2016102724

PATIENT
  Age: 64 Year
  Sex: Male

DRUGS (4)
  1. POSACONAZOLE [Concomitant]
     Active Substance: POSACONAZOLE
     Indication: PRODUCT USED FOR UNKNOWN INDICATION
     Route: 065
  2. MICAFUNGIN [Concomitant]
     Active Substance: MICAFUNGIN
     Indication: PRODUCT USED FOR UNKNOWN INDICATION
     Route: 065
  3. ISTODAX [Suspect]
     Active Substance: ROMIDEPSIN
     Indication: ENTEROPATHY-ASSOCIATED T-CELL LYMPHOMA
     Route: 065
  4. ISTODAX [Suspect]
     Active Substance: ROMIDEPSIN
     Route: 065

REACTIONS (2)
  - Cardiotoxicity [Unknown]
  - Respiratory distress [Fatal]
